FAERS Safety Report 15397998 (Version 2)
Quarter: 2018Q3

REPORT INFORMATION
  Report Type: Report from Study
  Country: US (occurrence: US)
  Receive Date: 20180918
  Receipt Date: 20180921
  Transmission Date: 20181010
  Serious: Yes (Hospitalization, Other)
  Sender: FDA-Public Use
  Company Number: US-ASTRAZENECA-2013SE37830

PATIENT
  Age: 20446 Day
  Sex: Male
  Weight: 83.9 kg

DRUGS (14)
  1. PRILOSEC [Suspect]
     Active Substance: OMEPRAZOLE MAGNESIUM
     Indication: GASTROOESOPHAGEAL REFLUX DISEASE
     Route: 048
  2. GABAPENTIN. [Concomitant]
     Active Substance: GABAPENTIN
     Indication: NEURALGIA
     Route: 048
  3. FLUOXETINE [Concomitant]
     Active Substance: FLUOXETINE HYDROCHLORIDE
     Indication: DEPRESSION
     Route: 048
  4. DILTIAZEM. [Concomitant]
     Active Substance: DILTIAZEM
     Indication: CARDIAC DISORDER
     Route: 048
  5. COUMADIN [Concomitant]
     Active Substance: WARFARIN SODIUM
     Indication: ATRIAL FIBRILLATION
     Route: 048
  6. TUDORZA PRESSAIR [Suspect]
     Active Substance: ACLIDINIUM BROMIDE
     Indication: CHRONIC OBSTRUCTIVE PULMONARY DISEASE
     Route: 055
  7. SYMBICORT [Suspect]
     Active Substance: BUDESONIDE\FORMOTEROL FUMARATE DIHYDRATE
     Indication: ASTHMA
     Dosage: 160/4.5 MCG, 2 PUFFS, TWICE A DAY
     Route: 055
  8. TORSEMIDE. [Concomitant]
     Active Substance: TORSEMIDE
     Indication: DIURETIC THERAPY
     Route: 048
  9. NEXIUM [Suspect]
     Active Substance: ESOMEPRAZOLE MAGNESIUM
     Indication: GASTROOESOPHAGEAL REFLUX DISEASE
     Route: 048
  10. ALBUTEROL SULPHATE NEBULIZER [Concomitant]
     Route: 055
  11. SYMBICORT [Suspect]
     Active Substance: BUDESONIDE\FORMOTEROL FUMARATE DIHYDRATE
     Indication: CHRONIC OBSTRUCTIVE PULMONARY DISEASE
     Dosage: 160/4.5 MCG, 2 PUFFS, TWICE A DAY
     Route: 055
  12. PRILOSEC OTC [Suspect]
     Active Substance: OMEPRAZOLE MAGNESIUM
     Route: 048
  13. SPIRONOLACTONE. [Concomitant]
     Active Substance: SPIRONOLACTONE
     Indication: DIURETIC THERAPY
     Route: 048
  14. VENTOLIN [Concomitant]
     Active Substance: ALBUTEROL SULFATE
     Indication: RESPIRATORY THERAPY
     Dosage: 90.0UG AS REQUIRED
     Route: 048

REACTIONS (30)
  - Cardiac valve disease [Unknown]
  - Lung disorder [Unknown]
  - Candida infection [Recovered/Resolved]
  - Gastrooesophageal reflux disease [Unknown]
  - Circumstance or information capable of leading to medication error [Unknown]
  - Wrong technique in product usage process [Unknown]
  - Dyspnoea exertional [Unknown]
  - Chronic obstructive pulmonary disease [Not Recovered/Not Resolved]
  - Decreased appetite [Unknown]
  - Drug dose omission [Unknown]
  - Pneumonia [Unknown]
  - Depression [Not Recovered/Not Resolved]
  - Dysphonia [Unknown]
  - Cataract [Unknown]
  - Hernia [Unknown]
  - Intervertebral disc disorder [Unknown]
  - Cough [Not Recovered/Not Resolved]
  - Pneumothorax [Unknown]
  - Emphysema [Unknown]
  - Neuralgia [Unknown]
  - Bronchiectasis [Unknown]
  - Dyspepsia [Unknown]
  - Device malfunction [Unknown]
  - Oesophageal disorder [Unknown]
  - Intentional device misuse [Unknown]
  - Haemorrhage [Recovered/Resolved]
  - Body height decreased [Unknown]
  - Atrial fibrillation [Unknown]
  - Oedema peripheral [Not Recovered/Not Resolved]
  - Asthma exercise induced [Unknown]

NARRATIVE: CASE EVENT DATE: 20020809
